FAERS Safety Report 8259168-1 (Version None)
Quarter: 2012Q2

REPORT INFORMATION
  Report Type: 
  Country: None (occurrence: None)
  Receive Date: 20120404
  Receipt Date: 20120326
  Transmission Date: 20120825
  Serious: Yes (Hospitalization)
  Sender: FDA-Public Use
  Company Number: FR-ASTRAZENECA-2012SE17856

PATIENT
  Age: 75 Year
  Sex: Male

DRUGS (3)
  1. ZESTRIL [Suspect]
     Indication: HYPERTENSION
     Route: 048
     Dates: end: 20111101
  2. INNOVAR [Concomitant]
     Indication: BRONCHITIS CHRONIC
     Dosage: 100/6 MICROGRAMS PER DOSE
     Route: 055
  3. ZOFENILDUO [Suspect]
     Indication: HYPERTENSION
     Dosage: 30 MG/ 12.5 MG
     Route: 048
     Dates: start: 20111101, end: 20120101

REACTIONS (3)
  - SKIN OEDEMA [None]
  - EOSINOPHILIA [None]
  - RASH MACULO-PAPULAR [None]
